FAERS Safety Report 12747335 (Version 3)
Quarter: 2017Q1

REPORT INFORMATION
  Report Type: Spontaneous
  Country: US (occurrence: US)
  Receive Date: 20160915
  Receipt Date: 20170208
  Transmission Date: 20170428
  Serious: Yes (Hospitalization, Other)
  Sender: FDA-Public Use
  Company Number: US-ASTELLAS-2016US003781

PATIENT
  Age: 78 Year
  Sex: Male

DRUGS (1)
  1. XTANDI [Suspect]
     Active Substance: ENZALUTAMIDE
     Indication: PROSTATE CANCER
     Route: 048

REACTIONS (6)
  - Blood count abnormal [Unknown]
  - Seizure [Unknown]
  - Body temperature increased [Unknown]
  - Fatigue [Unknown]
  - Muscle strain [Unknown]
  - Weight decreased [Unknown]

NARRATIVE: CASE EVENT DATE: 201610
